FAERS Safety Report 9778904 (Version 2)
Quarter: 2013Q4

REPORT INFORMATION
  Report Type: Report from Study
  Country: US (occurrence: US)
  Receive Date: 20131223
  Receipt Date: 20131223
  Transmission Date: 20140711
  Serious: Yes (Other)
  Sender: FDA-Public Use
  Company Number: US-BAYER-2013-140629

PATIENT
  Age: 61 Year
  Sex: Female

DRUGS (1)
  1. STIVARGA [Suspect]
     Indication: SOFT TISSUE CANCER
     Dosage: 160 MG, QD
     Route: 048
     Dates: start: 201310

REACTIONS (7)
  - Paralysis [None]
  - Carbon dioxide increased [None]
  - Diarrhoea [None]
  - Off label use [None]
  - Erythema [None]
  - Blood pressure increased [None]
  - Pain in extremity [None]
